FAERS Safety Report 23969628 (Version 2)
Quarter: 2024Q3

REPORT INFORMATION
  Report Type: Report from Study
  Country: BE (occurrence: BE)
  Receive Date: 20240613
  Receipt Date: 20240920
  Transmission Date: 20241017
  Serious: Yes (Other)
  Sender: ABBVIE
  Company Number: BE-ABBVIE-5791587

PATIENT
  Sex: Male

DRUGS (10)
  1. CARBIDOPA\LEVODOPA [Suspect]
     Active Substance: CARBIDOPA\LEVODOPA
     Indication: Parkinson^s disease
     Dosage: CD: 3.9ML/H (AM) CD: 4.4ML/H (PM),CND: 3.0 ML/H DURING 24 HOURS
     Route: 050
     Dates: start: 20231130, end: 20231219
  2. CARBIDOPA\LEVODOPA [Suspect]
     Active Substance: CARBIDOPA\LEVODOPA
     Route: 050
     Dates: start: 20110627
  3. CARBIDOPA\LEVODOPA [Suspect]
     Active Substance: CARBIDOPA\LEVODOPA
     Dosage: MD: 7.0ML, CD: 4.0ML/H, ED: 3.00ML,CND: 3.0ML/H DURING 16 HOURS
     Route: 050
     Dates: start: 20231219, end: 20240216
  4. CARBIDOPA\LEVODOPA [Suspect]
     Active Substance: CARBIDOPA\LEVODOPA
     Dosage: CD: 3.9ML/H (AM) CD: 4.1ML/H (PM),DURING 16 HOURS
     Route: 050
     Dates: start: 20231127, end: 20231130
  5. CARBIDOPA\LEVODOPA [Suspect]
     Active Substance: CARBIDOPA\LEVODOPA
     Dosage: MD: 7.0+3.0ML, CD: 4.0ML/H, ED: 3.00ML,CND: 3.0ML/H DURING 24 HOURS
     Route: 050
     Dates: start: 20240216
  6. PRAMIPEXOLE [Concomitant]
     Active Substance: PRAMIPEXOLE\PRAMIPEXOLE DIHYDROCHLORIDE
     Indication: Product used for unknown indication
     Dosage: FORM STRENGTH: 0.7?FORM STRENGTH UNITS: UNKNOWN? FREQUENCY TEXT: ONCE IN THE EVENING
     Route: 065
  7. PRAMIPEXOLE [Concomitant]
     Active Substance: PRAMIPEXOLE\PRAMIPEXOLE DIHYDROCHLORIDE
     Indication: Product used for unknown indication
     Dosage: FORM STRENGTH: 3.15?FORM STRENGTH UNITS: UNKNOWN?FREQUENCY TEXT: ONCE IN THE MORNING
     Route: 065
  8. STALEVO [Concomitant]
     Active Substance: CARBIDOPA\ENTACAPONE\LEVODOPA
     Indication: Product used for unknown indication
     Dosage: FORM STRENGTH: 150 ?FORM STRENGTH UNITS: UNKNOWN
     Route: 065
  9. BENSERAZIDE\LEVODOPA [Concomitant]
     Active Substance: BENSERAZIDE\LEVODOPA
     Indication: Parkinson^s disease
     Route: 048
  10. BENSERAZIDE\LEVODOPA [Concomitant]
     Active Substance: BENSERAZIDE\LEVODOPA
     Indication: Parkinson^s disease
     Dosage: FORM STRENGTH: 250 MILLIGRAM?FREQUENCY TEXT: AT 6HOURS 45 AND 17HOURS
     Route: 048

REACTIONS (5)
  - Embedded device [Not Recovered/Not Resolved]
  - Medical device site inflammation [Unknown]
  - Medical device site haemorrhage [Unknown]
  - Stoma complication [Unknown]
  - Stoma site infection [Unknown]
